FAERS Safety Report 18848000 (Version 1)
Quarter: 2021Q1

REPORT INFORMATION
  Report Type: Spontaneous
  Country: GB (occurrence: GB)
  Receive Date: 20210204
  Receipt Date: 20210204
  Transmission Date: 20210419
  Serious: Yes (Other)
  Sender: FDA-Public Use
  Company Number: KR-ASTRAZENECA-2021A026642

PATIENT
  Age: 28 Year
  Sex: Female

DRUGS (2)
  1. QUETIAPINE. [Suspect]
     Active Substance: QUETIAPINE
     Indication: AFFECTIVE DISORDER
     Dosage: 25MG OM, 50MG LUNCH, 100MG ON
     Route: 048
  2. AMITRIPTYLIN [Suspect]
     Active Substance: AMITRIPTYLINE
     Indication: AFFECTIVE DISORDER
     Dosage: 150.0MG UNKNOWN
     Route: 065

REACTIONS (1)
  - Electrocardiogram QT prolonged [Unknown]
